FAERS Safety Report 6131430-8 (Version None)
Quarter: 2009Q1

REPORT INFORMATION
  Report Type: 
  Country: None (occurrence: None)
  Receive Date: 20090325
  Receipt Date: 20081223
  Transmission Date: 20090719
  Serious: No
  Sender: FDA-Public Use
  Company Number: US-BRISTOL-MYERS SQUIBB COMPANY-14233076

PATIENT
  Age: 55 Year
  Sex: Male

DRUGS (1)
  1. ERBITUX [Suspect]
     Indication: LUNG NEOPLASM MALIGNANT
     Dosage: 644 MG 2 DOSES THEN 400 MG. STARTING FROM 10JUN08,17JUN08,24JUN08,08JUL08,15JUL08,22JUL08
     Route: 042
     Dates: start: 20080617, end: 20080617

REACTIONS (1)
  - RASH [None]
